FAERS Safety Report 11310143 (Version 4)
Quarter: 2015Q4

REPORT INFORMATION
  Report Type: Spontaneous
  Country: US (occurrence: US)
  Receive Date: 20150724
  Receipt Date: 20151106
  Transmission Date: 20160304
  Serious: Yes (Hospitalization, Other)
  Sender: FDA-Public Use
  Company Number: US-ELI_LILLY_AND_COMPANY-US201507006108

PATIENT
  Age: 80 Year
  Sex: Male

DRUGS (23)
  1. HUMALOG [Suspect]
     Active Substance: INSULIN LISPRO
     Indication: TYPE 2 DIABETES MELLITUS
     Dosage: UNK, PRN
     Route: 065
     Dates: start: 2014
  2. IMDUR [Concomitant]
     Active Substance: ISOSORBIDE MONONITRATE
  3. VOLTAREN [Concomitant]
     Active Substance: DICLOFENAC SODIUM
  4. PLAVIX [Concomitant]
     Active Substance: CLOPIDOGREL BISULFATE
  5. HUMALOG [Suspect]
     Active Substance: INSULIN LISPRO
     Indication: TYPE 2 DIABETES MELLITUS
     Dosage: UNK, PRN
     Route: 065
     Dates: start: 2014
  6. NORVASC [Concomitant]
     Active Substance: AMLODIPINE BESYLATE
  7. CRESTOR [Concomitant]
     Active Substance: ROSUVASTATIN CALCIUM
  8. BENICAR [Concomitant]
     Active Substance: OLMESARTAN MEDOXOMIL
  9. HUMULIN N [Suspect]
     Active Substance: INSULIN HUMAN
     Indication: TYPE 2 DIABETES MELLITUS
     Route: 065
  10. FISH OIL [Concomitant]
     Active Substance: FISH OIL
  11. METOPROLOL [Concomitant]
     Active Substance: METOPROLOL
  12. VITAMIN D                          /00107901/ [Concomitant]
     Active Substance: ERGOCALCIFEROL
  13. ULORIC [Concomitant]
     Active Substance: FEBUXOSTAT
  14. LIDOCAINE. [Concomitant]
     Active Substance: LIDOCAINE
  15. NOVOLOG [Concomitant]
     Active Substance: INSULIN ASPART
  16. NEXIUM [Concomitant]
     Active Substance: ESOMEPRAZOLE MAGNESIUM
  17. B-VITAMINS [Concomitant]
  18. MUCINEX [Concomitant]
     Active Substance: GUAIFENESIN
  19. GABAPENTIN. [Concomitant]
     Active Substance: GABAPENTIN
  20. NIZORAL [Concomitant]
     Active Substance: KETOCONAZOLE
  21. LEVEMIR [Concomitant]
     Active Substance: INSULIN DETEMIR
  22. ALLOPURINOL. [Concomitant]
     Active Substance: ALLOPURINOL
  23. ZANTAC [Concomitant]
     Active Substance: RANITIDINE HYDROCHLORIDE

REACTIONS (18)
  - Chest pain [Unknown]
  - Costochondritis [Unknown]
  - Chest pain [Unknown]
  - Stress [Unknown]
  - Arthritis [Unknown]
  - Hypotension [Unknown]
  - Pneumonia [Unknown]
  - Blood glucose increased [Unknown]
  - Insulin resistance [Unknown]
  - Pain [Unknown]
  - Arterial occlusive disease [Unknown]
  - Mastication disorder [Unknown]
  - Drug ineffective [Unknown]
  - Myocardial infarction [Unknown]
  - Crush injury [Unknown]
  - Musculoskeletal pain [Unknown]
  - Limb injury [Unknown]
  - Malaise [Unknown]

NARRATIVE: CASE EVENT DATE: 201410
